FAERS Safety Report 7452945-6 (Version None)
Quarter: 2011Q2

REPORT INFORMATION
  Report Type: 
  Country: None (occurrence: None)
  Receive Date: 20110502
  Receipt Date: 20110427
  Transmission Date: 20111010
  Serious: Yes (Death)
  Sender: FDA-Public Use
  Company Number: CZ-PFIZER INC-2011090251

PATIENT
  Age: 50 Year
  Sex: Female

DRUGS (3)
  1. METHYLPREDNISOLONE [Suspect]
     Indication: POLYMYOSITIS
     Dosage: 500 MG, 1X/DAY, 3 PULSES
  2. PREDNISONE [Suspect]
     Indication: POLYMYOSITIS
     Dosage: 50 MG, DAILY
  3. PREDNISONE [Suspect]
     Dosage: 5 MG, DAILY

REACTIONS (1)
  - DISEASE PROGRESSION [None]
